FAERS Safety Report 9186010 (Version 1)
Quarter: 2013Q1

REPORT INFORMATION
  Report Type: Spontaneous
  Country: GB (occurrence: GB)
  Receive Date: 20130325
  Receipt Date: 20130325
  Transmission Date: 20140127
  Serious: Yes (Other)
  Sender: FDA-Public Use
  Company Number: GB-TEVA-392332ISR

PATIENT
  Age: 40 Year
  Sex: Male
  Weight: 100 kg

DRUGS (6)
  1. AZITHROMYCIN [Suspect]
     Indication: SINUSITIS
     Dosage: 500 MILLIGRAM DAILY;
     Route: 048
     Dates: start: 20121226, end: 20121228
  2. LORATADINE [Concomitant]
  3. PARACETAMOL [Concomitant]
  4. IBUPROFEN [Concomitant]
  5. FLIXONASE [Concomitant]
  6. OTRIVINE [Concomitant]

REACTIONS (2)
  - Anxiety [Recovered/Resolved]
  - Insomnia [Recovered/Resolved]
